FAERS Safety Report 5519076-3 (Version None)
Quarter: 2007Q4

REPORT INFORMATION
  Report Type: 
  Country: None (occurrence: None)
  Receive Date: 20071116
  Receipt Date: 20071113
  Transmission Date: 20080405
  Serious: Yes (Other)
  Sender: FDA-Public Use
  Company Number: ES-BRISTOL-MYERS SQUIBB COMPANY-13980404

PATIENT
  Sex: Female

DRUGS (1)
  1. KARVEZIDE [Suspect]

REACTIONS (1)
  - ANAPHYLACTIC SHOCK [None]
